FAERS Safety Report 24264632 (Version 1)
Quarter: 2024Q3

REPORT INFORMATION
  Report Type: Spontaneous
  Country: JP (occurrence: JP)
  Receive Date: 20240829
  Receipt Date: 20240829
  Transmission Date: 20241017
  Serious: Yes (Other)
  Sender: FERRING
  Company Number: JP-FERRINGPH-2024FE04808

PATIENT

DRUGS (5)
  1. PICOPREP [Suspect]
     Active Substance: ANHYDROUS CITRIC ACID\MAGNESIUM OXIDE\SODIUM PICOSULFATE
     Indication: Bowel preparation
     Dosage: 150 MG, QD
     Route: 048
     Dates: start: 20230916, end: 20230916
  2. SENNOSIDES A AND B [Suspect]
     Active Substance: SENNOSIDES A AND B
     Indication: Bowel preparation
     Dosage: 12 MG X 2 H.S.
     Route: 048
     Dates: start: 20230915, end: 20230915
  3. ZOLPIDEM [Concomitant]
     Active Substance: ZOLPIDEM TARTRATE
     Indication: Insomnia
     Dosage: H.S.
     Route: 048
  4. SULPIRIDE [Concomitant]
     Active Substance: SULPIRIDE
     Indication: Depression
     Dosage: UNK
     Route: 048
  5. FLUVOXAMINE [Concomitant]
     Active Substance: FLUVOXAMINE
     Indication: Depression
     Dosage: UNK
     Route: 048

REACTIONS (4)
  - Colitis ischaemic [Recovered/Resolved]
  - Abdominal pain [Recovered/Resolved]
  - Product use issue [Recovered/Resolved]
  - Treatment noncompliance [Recovered/Resolved]

NARRATIVE: CASE EVENT DATE: 20230916
